FAERS Safety Report 5454828-X (Version None)
Quarter: 2007Q3

REPORT INFORMATION
  Report Type: 
  Country: None (occurrence: None)
  Receive Date: 20070917
  Receipt Date: 20070909
  Transmission Date: 20080115
  Serious: Yes (Hospitalization)
  Sender: FDA-Public Use
  Company Number: US-ABBOTT-07P-163-0416575-00

PATIENT
  Sex: Female
  Weight: 59.02 kg

DRUGS (6)
  1. HUMIRA [Suspect]
     Indication: RHEUMATOID ARTHRITIS
     Route: 058
     Dates: start: 20040101, end: 20070201
  2. HUMIRA [Suspect]
     Route: 058
     Dates: start: 20070401, end: 20070701
  3. HUMIRA [Suspect]
     Route: 058
  4. PREDNISONE [Concomitant]
     Indication: RHEUMATOID ARTHRITIS
     Route: 048
  5. CELECOXIB [Concomitant]
     Indication: RHEUMATOID ARTHRITIS
     Route: 048
  6. GABAPENTIN [Concomitant]
     Indication: FIBROMYALGIA
     Route: 048

REACTIONS (6)
  - COLITIS [None]
  - COUGH [None]
  - HEADACHE [None]
  - PANCREATITIS [None]
  - SINUS DISORDER [None]
  - UPPER LIMB FRACTURE [None]
